FAERS Safety Report 12182591 (Version 2)
Quarter: 2016Q2

REPORT INFORMATION
  Report Type: Spontaneous
  Country: BR (occurrence: BR)
  Receive Date: 20160316
  Receipt Date: 20160426
  Transmission Date: 20160815
  Serious: No
  Sender: FDA-Public Use
  Company Number: BR-AMGEN-BRASP2016014823

PATIENT
  Age: 51 Year
  Sex: Female
  Weight: 79 kg

DRUGS (1)
  1. ENBREL [Suspect]
     Active Substance: ETANERCEPT
     Indication: ANKYLOSING SPONDYLITIS
     Dosage: 50 MG, ONCE WEEKLY
     Route: 058
     Dates: start: 20160106

REACTIONS (8)
  - Back pain [Recovered/Resolved]
  - Injection site erythema [Unknown]
  - Injection site haematoma [Recovered/Resolved]
  - Injection site mass [Unknown]
  - Pain [Recovered/Resolved]
  - Injection site induration [Unknown]
  - Injection site pruritus [Unknown]
  - Musculoskeletal chest pain [Recovered/Resolved]

NARRATIVE: CASE EVENT DATE: 2016
